FAERS Safety Report 8905902 (Version 6)
Quarter: 2013Q2

REPORT INFORMATION
  Report Type: Spontaneous
  Country: US (occurrence: US)
  Receive Date: 20121113
  Receipt Date: 20130416
  Transmission Date: 20140414
  Serious: Yes (Hospitalization, Disabling, Other)
  Sender: FDA-Public Use
  Company Number: US-009507513-1201USA03444

PATIENT
  Sex: Female
  Weight: 106.12 kg

DRUGS (7)
  1. FOSAMAX [Suspect]
     Indication: OSTEOPOROSIS
     Dosage: 70 MG, QW
     Route: 048
     Dates: start: 2005, end: 200711
  2. BONIVA [Suspect]
     Indication: OSTEOPOROSIS
     Dosage: 150 MG, QM
     Route: 048
     Dates: start: 200711, end: 200811
  3. ALENDRONATE SODIUM [Suspect]
     Indication: OSTEOPOROSIS
     Dosage: 70 MG, QW
     Route: 048
     Dates: start: 200811, end: 201003
  4. CENTRUM (MINERALS (UNSPECIFIED) (+) VITAMINS (UNSPECIFIED)) [Concomitant]
     Dosage: UNK, QD
     Dates: start: 1980
  5. CALCIUM (UNSPECIFIED) (+) VITAMIN D (UNSPECIFIED) [Concomitant]
     Dosage: 600 MG, BID
     Dates: start: 1980
  6. IRON (UNSPECIFIED) [Concomitant]
     Dosage: 65 MG, BID
     Dates: start: 1980
  7. CYANOCOBALAMIN [Concomitant]
     Dosage: 500 MICROGRAM, QD
     Dates: start: 1980

REACTIONS (27)
  - Femur fracture [Unknown]
  - Open reduction of fracture [Unknown]
  - Post procedural infection [Unknown]
  - Cholecystectomy [Recovered/Resolved]
  - Femur fracture [Unknown]
  - Knee arthroplasty [Unknown]
  - Medical device removal [Unknown]
  - Pulmonary embolism [Unknown]
  - Haemorrhagic anaemia [Unknown]
  - Hypokalaemia [Unknown]
  - Transfusion [Recovered/Resolved]
  - Haemoglobin decreased [Recovered/Resolved]
  - Hip arthroplasty [Unknown]
  - Surgical failure [Unknown]
  - Hysterectomy [Recovered/Resolved]
  - Dysmenorrhoea [Recovered/Resolved]
  - Neuralgia [Unknown]
  - Tooth extraction [Unknown]
  - Infection [Not Recovered/Not Resolved]
  - Device dislocation [Unknown]
  - Device related infection [Recovered/Resolved]
  - Intervertebral disc degeneration [Unknown]
  - Staphylococcal infection [Unknown]
  - Arthrotomy [Recovering/Resolving]
  - Pain in extremity [Unknown]
  - Gastritis [Unknown]
  - Drug hypersensitivity [Unknown]
